FAERS Safety Report 24044214 (Version 1)
Quarter: 2024Q3

REPORT INFORMATION
  Report Type: Spontaneous
  Country: US (occurrence: US)
  Receive Date: 20240703
  Receipt Date: 20240703
  Transmission Date: 20241017
  Serious: Yes (Life-Threatening, Hospitalization)
  Sender: HIKMA
  Company Number: US-MLMSERVICE-20240613-PI097480-00145-1

PATIENT

DRUGS (4)
  1. FENTANYL [Suspect]
     Active Substance: FENTANYL\FENTANYL CITRATE
     Indication: Endotracheal intubation
     Dosage: 175 UG, QH
     Route: 065
  2. FENTANYL [Suspect]
     Active Substance: FENTANYL\FENTANYL CITRATE
     Indication: Sedation
     Dosage: 50 UG, QH
     Route: 065
  3. PROPOFOL [Concomitant]
     Active Substance: PROPOFOL
     Indication: Sedation
     Dosage: 40 UG/KG
     Route: 065
  4. PROPOFOL [Concomitant]
     Active Substance: PROPOFOL
     Indication: Endotracheal intubation

REACTIONS (3)
  - Encephalopathy [Recovering/Resolving]
  - Chest wall rigidity [Recovered/Resolved]
  - Medication error [Recovered/Resolved]
